FAERS Safety Report 11825378 (Version 1)
Quarter: 2015Q4

REPORT INFORMATION
  Report Type: Spontaneous
  Country: US (occurrence: None)
  Receive Date: 20151210
  Receipt Date: 20151210
  Transmission Date: 20160305
  Serious: Yes (Other)
  Sender: FDA-Public Use
  Company Number: None

PATIENT
  Sex: Female

DRUGS (13)
  1. DETROL [Concomitant]
     Active Substance: TOLTERODINE TARTRATE
  2. LEVOTHYROXINE. [Concomitant]
     Active Substance: LEVOTHYROXINE
  3. GENOTROPIN [Concomitant]
     Active Substance: SOMATROPIN
  4. LACTULOS [Concomitant]
     Active Substance: LACTULOSE
  5. CALCIUM CARBONATE. [Concomitant]
     Active Substance: CALCIUM CARBONATE
  6. JANUVIA [Concomitant]
     Active Substance: SITAGLIPTIN PHOSPHATE
  7. LETROZOLE. [Concomitant]
     Active Substance: LETROZOLE
  8. FOLIC ACID. [Concomitant]
     Active Substance: FOLIC ACID
  9. ZOFRAN [Concomitant]
     Active Substance: ONDANSETRON HYDROCHLORIDE
  10. IBRANCE [Suspect]
     Active Substance: PALBOCICLIB
     Indication: NEOPLASM MALIGNANT
     Route: 048
     Dates: start: 20151126
  11. FERROUS GLUCONATE [Concomitant]
     Active Substance: FERROUS GLUCONATE
  12. TYLENOL [Concomitant]
     Active Substance: ACETAMINOPHEN
  13. IBUPROFEN. [Concomitant]
     Active Substance: IBUPROFEN

REACTIONS (3)
  - Neuropathy peripheral [None]
  - Fatigue [None]
  - Headache [None]
